FAERS Safety Report 8217884-1 (Version None)
Quarter: 2012Q1

REPORT INFORMATION
  Report Type: 
  Country: None (occurrence: None)
  Receive Date: 20120314
  Receipt Date: 20120228
  Transmission Date: 20120608
  Serious: Yes (Death, Other)
  Sender: FDA-Public Use
  Company Number: FK201200622

PATIENT
  Age: 78 Year
  Sex: Male
  Weight: 70 kg

DRUGS (3)
  1. HEPARIN [Suspect]
     Indication: CORONARY ARTERIAL STENT INSERTION
     Dosage: 5000 USP UNITS, INTRAVENOUS (NOT OTHERWISE SPECIFIED)
     Route: 042
  2. HEPARIN LMW (DALTEPARIN SODIUM) [Concomitant]
  3. DALTEPARIN SODIUM [Concomitant]

REACTIONS (8)
  - CHEST DISCOMFORT [None]
  - ARTERIAL THROMBOSIS [None]
  - ELECTROCARDIOGRAM T WAVE ABNORMAL [None]
  - CEREBROVASCULAR ACCIDENT [None]
  - ELECTROCARDIOGRAM ST SEGMENT ELEVATION [None]
  - DEVICE OCCLUSION [None]
  - HEPARIN-INDUCED THROMBOCYTOPENIA [None]
  - CEREBRAL INFARCTION [None]
